FAERS Safety Report 5330701-2 (Version None)
Quarter: 2007Q2

REPORT INFORMATION
  Report Type: 
  Country: None (occurrence: None)
  Receive Date: 20070522
  Receipt Date: 20070511
  Transmission Date: 20071010
  Serious: Yes (Other)
  Sender: FDA-Public Use
  Company Number: PHEH2007US05112

PATIENT
  Age: 61 Year
  Sex: Female

DRUGS (2)
  1. ZELNORM [Suspect]
     Route: 050
  2. DYAZIDE [Concomitant]

REACTIONS (7)
  - ANGINA PECTORIS [None]
  - CHEST PAIN [None]
  - DIARRHOEA [None]
  - DYSPNOEA [None]
  - OXYGEN SUPPLEMENTATION [None]
  - PAIN IN EXTREMITY [None]
  - PRODUCTIVE COUGH [None]
